FAERS Safety Report 18929020 (Version 1)
Quarter: 2021Q1

REPORT INFORMATION
  Report Type: Spontaneous
  Country: US (occurrence: US)
  Receive Date: 20210223
  Receipt Date: 20210223
  Transmission Date: 20210420
  Serious: No
  Sender: FDA-Public Use
  Company Number: US-ROCHE-2567402

PATIENT
  Age: 11 Year
  Sex: Male

DRUGS (1)
  1. NUTROPIN AQ [Suspect]
     Active Substance: SOMATROPIN
     Indication: GROWTH HORMONE DEFICIENCY
     Route: 058
     Dates: start: 202002

REACTIONS (6)
  - Contusion [Unknown]
  - Mass [Unknown]
  - Needle issue [Unknown]
  - Product administration error [Unknown]
  - Injection site pain [Unknown]
  - Procedural anxiety [Unknown]

NARRATIVE: CASE EVENT DATE: 20200310
